FAERS Safety Report 8408619-8 (Version None)
Quarter: 2012Q2

REPORT INFORMATION
  Report Type: 
  Country: None (occurrence: None)
  Receive Date: 20120604
  Receipt Date: 20120124
  Transmission Date: 20120825
  Serious: No
  Sender: FDA-Public Use
  Company Number: US-NOVEN-12US003984

PATIENT
  Age: 8 Year
  Sex: Male

DRUGS (3)
  1. DAYTRANA [Suspect]
     Indication: PRODUCT USED FOR UNKNOWN INDICATION
     Dosage: 10 UNK, UNK
     Route: 062
     Dates: start: 20110101
  2. DAYTRANA [Suspect]
     Dosage: 10 UNK, UNK
     Route: 062
  3. DAYTRANA [Suspect]
     Dosage: 15 UNK, UNK
     Route: 062

REACTIONS (3)
  - TACHYCARDIA [None]
  - PALPITATIONS [None]
  - HYPERHIDROSIS [None]
